FAERS Safety Report 16737274 (Version 1)
Quarter: 2019Q3

REPORT INFORMATION
  Report Type: Spontaneous
  Country: FR (occurrence: FR)
  Receive Date: 20190823
  Receipt Date: 20190823
  Transmission Date: 20191005
  Serious: Yes (Other)
  Sender: FDA-Public Use
  Company Number: FR-TEVA-2019-FR-1094730

PATIENT
  Age: 52 Year
  Sex: Female

DRUGS (1)
  1. MODIODAL 100 MG, COMPRIM? [Suspect]
     Active Substance: MODAFINIL
     Indication: ACCIDENTAL OVERDOSE
     Dosage: 400MG
     Route: 048
     Dates: start: 20190709, end: 20190709

REACTIONS (5)
  - Depressed level of consciousness [Unknown]
  - Somnolence [Unknown]
  - Accidental overdose [Recovered/Resolved]
  - Medication error [Recovered/Resolved]
  - Confusional state [Unknown]

NARRATIVE: CASE EVENT DATE: 20190709
